FAERS Safety Report 6468439-0 (Version None)
Quarter: 2009Q4

REPORT INFORMATION
  Report Type: 
  Country: None (occurrence: None)
  Receive Date: 20091202
  Receipt Date: 20091202
  Transmission Date: 20100525
  Serious: Yes (Other)
  Sender: FDA-Public Use
  Company Number: None

PATIENT
  Sex: Male
  Weight: 64.4108 kg

DRUGS (1)
  1. TRILIPIX [Suspect]
     Indication: BLOOD CHOLESTEROL
     Dosage: 135MG 1 DAILY 0/07 +/-;  45MG 1 DAILY 8/09 +/-

REACTIONS (4)
  - CONTUSION [None]
  - DYSPNOEA [None]
  - IMPAIRED HEALING [None]
  - PNEUMONIA [None]
